FAERS Safety Report 7654643-2 (Version None)
Quarter: 2011Q3

REPORT INFORMATION
  Report Type: 
  Country: None (occurrence: None)
  Receive Date: 20110804
  Receipt Date: 20110723
  Transmission Date: 20111222
  Serious: Yes (Hospitalization, Other)
  Sender: FDA-Public Use
  Company Number: CN-PAR PHARMACEUTICAL, INC-2011SCPR003133

PATIENT

DRUGS (4)
  1. DEXAMETHASONE [Suspect]
     Indication: LEUKAEMIC INFILTRATION BRAIN
     Dosage: 5 MG, UNKNOWN
  2. METHOTREXATE [Suspect]
     Indication: LEUKAEMIC INFILTRATION BRAIN
     Dosage: 15 MG, UNKNOWN
  3. CYTARABINE [Suspect]
     Indication: LEUKAEMIC INFILTRATION BRAIN
     Dosage: 50 MG, UNKNOWN
  4. LIDOCAINE [Concomitant]
     Indication: INFILTRATION ANAESTHESIA
     Dosage: 1.5 ML, UNKNOWN
     Route: 065

REACTIONS (5)
  - PRURITUS [None]
  - MYELOPATHY [None]
  - SEDATION [None]
  - AGITATION [None]
  - DYSPNOEA [None]
